FAERS Safety Report 7022319-0 (Version None)
Quarter: 2010Q3

REPORT INFORMATION
  Report Type: 
  Country: None (occurrence: None)
  Receive Date: 20100930
  Receipt Date: 20100920
  Transmission Date: 20110219
  Serious: Yes (Other)
  Sender: FDA-Public Use
  Company Number: US-SANOFI-AVENTIS-2009SA005861

PATIENT
  Age: 54 Year
  Sex: Male

DRUGS (21)
  1. MULTAQ [Suspect]
     Route: 048
     Dates: start: 20091001
  2. MULTAQ [Suspect]
     Indication: VENTRICULAR ARRHYTHMIA
     Route: 048
     Dates: start: 20091001
  3. MULTAQ [Suspect]
     Indication: ATRIAL FIBRILLATION
     Route: 048
     Dates: start: 20091001
  4. MULTAQ [Suspect]
     Route: 048
  5. MULTAQ [Suspect]
     Route: 048
  6. MULTAQ [Suspect]
     Route: 048
  7. MULTAQ [Suspect]
     Route: 048
  8. MULTAQ [Suspect]
     Route: 048
  9. MULTAQ [Suspect]
     Route: 048
  10. COREG [Concomitant]
     Route: 048
  11. LISINOPRIL [Concomitant]
     Route: 048
     Dates: start: 20080101
  12. LISINOPRIL [Concomitant]
     Route: 048
     Dates: start: 20080101
  13. ASPIRIN [Concomitant]
     Route: 048
  14. MEXILETINE [Concomitant]
     Indication: VENTRICULAR ARRHYTHMIA
     Route: 048
  15. HYDRALAZINE HCL [Concomitant]
     Route: 048
     Dates: start: 20050101
  16. LIPITOR [Concomitant]
     Route: 048
     Dates: start: 20090101
  17. LANTUS [Concomitant]
     Route: 058
     Dates: start: 19970101
  18. HUMALOG [Concomitant]
     Route: 058
  19. ZOLOFT [Concomitant]
  20. LASIX [Concomitant]
  21. ATIVAN [Concomitant]

REACTIONS (15)
  - ACCOMMODATION DISORDER [None]
  - ATRIAL FIBRILLATION [None]
  - BLOOD CREATININE INCREASED [None]
  - BLOOD GLUCOSE ABNORMAL [None]
  - CARDIAC FAILURE CONGESTIVE [None]
  - CHEST DISCOMFORT [None]
  - CONFUSIONAL STATE [None]
  - DEPRESSION [None]
  - DRUG INTOLERANCE [None]
  - DYSPNOEA [None]
  - INCORRECT DOSE ADMINISTERED [None]
  - MYALGIA [None]
  - OEDEMA PERIPHERAL [None]
  - RENAL IMPAIRMENT [None]
  - SWELLING [None]
